FAERS Safety Report 19163711 (Version 1)
Quarter: 2021Q2

REPORT INFORMATION
  Report Type: Spontaneous
  Country: PT (occurrence: PT)
  Receive Date: 20210421
  Receipt Date: 20210421
  Transmission Date: 20210717
  Serious: Yes (Other)
  Sender: FDA-Public Use
  Company Number: PT-MYLANLABS-2021M1023493

PATIENT
  Age: 42 Year
  Sex: Female

DRUGS (11)
  1. ADALIMUMAB [Suspect]
     Active Substance: ADALIMUMAB
     Indication: PYODERMA GANGRENOSUM
     Dosage: 80 MILLIGRAM WEEK 0 AND 2...
     Route: 065
     Dates: start: 2018
  2. INFLIXIMAB [Suspect]
     Active Substance: INFLIXIMAB
     Dosage: 10 MILLIGRAM/KILOGRAM Q6W MAINTENANCE THERAPY
     Route: 065
     Dates: start: 2018
  3. MESALAZINE [Concomitant]
     Active Substance: MESALAMINE
     Indication: COLITIS ULCERATIVE
     Dosage: AS MAINTENANCE TREATMENT
     Route: 048
  4. MESALAZINE [Concomitant]
     Active Substance: MESALAMINE
     Dosage: 4.5 GRAM, QD
     Route: 048
  5. ADALIMUMAB [Suspect]
     Active Substance: ADALIMUMAB
     Dosage: 40 MILLIGRAM, BIWEEKLY MAINTENANCE THERAPY
     Route: 065
     Dates: start: 2018
  6. PREDNISOLONE. [Suspect]
     Active Substance: PREDNISOLONE
     Indication: PYODERMA GANGRENOSUM
     Dosage: 60 MILLIGRAM 0.75 MG/KG/DAY
     Route: 048
     Dates: start: 2018
  7. MESALAZINE [Concomitant]
     Active Substance: MESALAMINE
     Indication: COLITIS ULCERATIVE
     Dosage: UNK
     Route: 061
  8. MEROPENEM. [Concomitant]
     Active Substance: MEROPENEM
     Indication: PSEUDOMONAS INFECTION
  9. INFLIXIMAB [Suspect]
     Active Substance: INFLIXIMAB
     Indication: PYODERMA GANGRENOSUM
     Dosage: 10 MILLIGRAM/KILOGRAM WEEK 0, 2 AND 6...
     Route: 065
     Dates: start: 2018
  10. HYDROCORTISONE. [Suspect]
     Active Substance: HYDROCORTISONE
     Indication: PYODERMA GANGRENOSUM
     Dosage: 400 MILLIGRAM, QD 4?DAY INDUCTION
     Route: 065
     Dates: start: 2019
  11. MEROPENEM. [Concomitant]
     Active Substance: MEROPENEM
     Indication: SUPERINFECTION BACTERIAL
     Dosage: 500 MILLIGRAM, TID
     Route: 042
     Dates: start: 2019

REACTIONS (2)
  - Off label use [Unknown]
  - Drug ineffective for unapproved indication [Unknown]
